FAERS Safety Report 23432357 (Version 3)
Quarter: 2025Q3

REPORT INFORMATION
  Report Type: Spontaneous
  Country: EU (occurrence: EU)
  Receive Date: 20240123
  Receipt Date: 20250710
  Transmission Date: 20251021
  Serious: Yes (Death)
  Sender: NOVARTIS
  Company Number: EU-002147023-NVSC2024DE013977

PATIENT
  Sex: Female
  Weight: 79 kg

DRUGS (2)
  1. DABRAFENIB [Suspect]
     Active Substance: DABRAFENIB
     Indication: Non-small cell lung cancer
     Dosage: 300 MG, QD
     Route: 065
     Dates: start: 20231005, end: 20231027
  2. TRAMETINIB [Suspect]
     Active Substance: TRAMETINIB
     Indication: Non-small cell lung cancer
     Dosage: 4 MG, QD
     Route: 065
     Dates: start: 20231005, end: 20231027

REACTIONS (4)
  - Non-small cell lung cancer [Fatal]
  - Malignant neoplasm progression [Fatal]
  - General physical health deterioration [Fatal]
  - Incorrect dose administered [Unknown]
